FAERS Safety Report 8382062-2 (Version None)
Quarter: 2012Q2

REPORT INFORMATION
  Report Type: 
  Country: None (occurrence: None)
  Receive Date: 20120523
  Receipt Date: 20120523
  Transmission Date: 20120825
  Serious: Yes (Other)
  Sender: FDA-Public Use
  Company Number: None

PATIENT
  Sex: Female

DRUGS (1)
  1. HUMIRA [Suspect]
     Indication: CROHN'S DISEASE
     Dosage: 40MG EVERY OTHER WEEK SQ
     Route: 058
     Dates: start: 20120215, end: 20120515

REACTIONS (6)
  - MICTURITION DISORDER [None]
  - HEADACHE [None]
  - INFLUENZA LIKE ILLNESS [None]
  - PRURITUS [None]
  - VOMITING [None]
  - HYPERSENSITIVITY [None]
